FAERS Safety Report 16377148 (Version 1)
Quarter: 2019Q2

REPORT INFORMATION
  Report Type: Spontaneous
  Country: US (occurrence: US)
  Receive Date: 20190531
  Receipt Date: 20190531
  Transmission Date: 20190711
  Serious: No
  Sender: FDA-Public Use
  Company Number: US-TEVA-2019-US-1049102

PATIENT

DRUGS (1)
  1. ANASTROZOLE TABLET TEVA [Suspect]
     Active Substance: ANASTROZOLE

REACTIONS (4)
  - Insomnia [Unknown]
  - Anxiety [Unknown]
  - Mood altered [Unknown]
  - Hot flush [Unknown]
